FAERS Safety Report 16201274 (Version 1)
Quarter: 2019Q2

REPORT INFORMATION
  Report Type: Report from Study
  Country: CA (occurrence: CA)
  Receive Date: 20190416
  Receipt Date: 20190416
  Transmission Date: 20190711
  Serious: Yes (Other)
  Sender: FDA-Public Use
  Company Number: CA-TEVA-2019-CA-1037559

PATIENT
  Sex: Female
  Weight: 120 kg

DRUGS (17)
  1. INSULIN [Concomitant]
     Active Substance: INSULIN NOS
  2. METFORMIN HYDROCHLORIDE/SITAGLIPTIN PHOSPHATE [Concomitant]
     Active Substance: METFORMIN HYDROCHLORIDE\SITAGLIPTIN PHOSPHATE
  3. TYLENOL [Concomitant]
     Active Substance: ACETAMINOPHEN
  4. DULOXETINE. [Concomitant]
     Active Substance: DULOXETINE
  5. ENALAPRIL [Concomitant]
     Active Substance: ENALAPRIL
  6. LAMIVUDINE. [Concomitant]
     Active Substance: LAMIVUDINE
  7. AMLODIPINE [Concomitant]
     Active Substance: AMLODIPINE BESYLATE
  8. PANTOPRAZOLE [Concomitant]
     Active Substance: PANTOPRAZOLE
  9. ROSUVASTATIN. [Concomitant]
     Active Substance: ROSUVASTATIN
  10. COENZYME Q10 [Concomitant]
     Active Substance: UBIDECARENONE
  11. ACTEMRA [Suspect]
     Active Substance: TOCILIZUMAB
     Indication: RHEUMATOID ARTHRITIS
     Route: 058
  12. COLLAGEN [Concomitant]
     Active Substance: COLLAGEN
  13. DILTIAZEM. [Concomitant]
     Active Substance: DILTIAZEM
  14. METHOTREXATE. [Concomitant]
     Active Substance: METHOTREXATE
  15. LEFLUNOMIDE. [Suspect]
     Active Substance: LEFLUNOMIDE
     Indication: PRODUCT USED FOR UNKNOWN INDICATION
     Route: 065
  16. APO-HYDRO [Concomitant]
     Active Substance: HYDROCHLOROTHIAZIDE
  17. FOLIC ACID. [Concomitant]
     Active Substance: FOLIC ACID

REACTIONS (3)
  - Pain in extremity [Not Recovered/Not Resolved]
  - Weight increased [Not Recovered/Not Resolved]
  - Drug intolerance [Not Recovered/Not Resolved]
